FAERS Safety Report 8589250-0 (Version None)
Quarter: 2012Q3

REPORT INFORMATION
  Report Type: 
  Country: None (occurrence: None)
  Receive Date: 20120813
  Receipt Date: 20120807
  Transmission Date: 20120928
  Serious: Yes (Other)
  Sender: FDA-Public Use
  Company Number: JP-VERTEX PHARMACEUTICALS INC.-AE-2012-004722

PATIENT
  Age: 63 Year
  Sex: Female

DRUGS (14)
  1. TELAVIC (TELAPREVIR) [Suspect]
     Route: 048
     Dates: start: 20120223, end: 20120327
  2. RIBAVIRIN [Concomitant]
     Route: 048
     Dates: start: 20120223
  3. RIBAVIRIN [Concomitant]
     Route: 048
     Dates: start: 20120217, end: 20120222
  4. EPADEL S [Concomitant]
     Route: 048
  5. FUNGIZONE [Concomitant]
     Route: 048
     Dates: start: 20120328, end: 20120405
  6. PEGINTERFERON ALFA-2A [Concomitant]
     Indication: HEPATITIS C
     Route: 051
     Dates: start: 20120202
  7. LOXONIN [Concomitant]
     Route: 048
     Dates: start: 20120131
  8. RIBAVIRIN [Concomitant]
     Route: 048
     Dates: start: 20120606
  9. RIBAVIRIN [Concomitant]
     Route: 048
     Dates: start: 20120614
  10. EPADEL S [Concomitant]
     Route: 048
     Dates: start: 20120202
  11. TELAVIC (TELAPREVIR) [Suspect]
     Indication: HEPATITIS C
     Route: 048
     Dates: start: 20120202, end: 20120222
  12. RIBAVIRIN [Concomitant]
     Route: 046
     Dates: start: 20120628
  13. AMOBAN [Concomitant]
     Route: 048
     Dates: start: 20120131
  14. RIBAVIRIN [Concomitant]
     Indication: HEPATITIS C
     Route: 048
     Dates: start: 20120202, end: 20120216

REACTIONS (2)
  - WHITE BLOOD CELL COUNT DECREASED [None]
  - HAEMOGLOBIN DECREASED [None]
